FAERS Safety Report 5023535-X (Version None)
Quarter: 2006Q2

REPORT INFORMATION
  Report Type: 
  Country: None (occurrence: None)
  Receive Date: 20060612
  Receipt Date: 20060607
  Transmission Date: 20061013
  Serious: Yes (Death)
  Sender: FDA-Public Use
  Company Number: NO-GLAXOSMITHKLINE-B0426986A

PATIENT
  Age: 53 Year
  Sex: Male

DRUGS (3)
  1. LAMICTAL [Suspect]
     Dosage: 100MG PER DAY
  2. REMERON [Suspect]
     Dosage: 30MG PER DAY
  3. EFFEXOR [Suspect]

REACTIONS (1)
  - SUDDEN DEATH [None]
